FAERS Safety Report 17649015 (Version 2)
Quarter: 2020Q2

REPORT INFORMATION
  Report Type: Spontaneous
  Country: US (occurrence: US)
  Receive Date: 20200408
  Receipt Date: 20200430
  Transmission Date: 20200713
  Serious: No
  Sender: FDA-Public Use
  Company Number: US-PFIZER INC-2020146348

PATIENT
  Age: 39 Year
  Sex: Female
  Weight: 79 kg

DRUGS (8)
  1. TAXOTERE [Suspect]
     Active Substance: DOCETAXEL
     Dosage: 600 MG, CYCLIC (04 CYCLES)
     Dates: start: 20091026, end: 20091228
  2. ZANTAC [Concomitant]
     Active Substance: RANITIDINE HYDROCHLORIDE
     Dosage: UNK
  3. DOCETAXEL. [Suspect]
     Active Substance: DOCETAXEL
     Dosage: 600 MG, CYCLIC (04 CYCLES)
     Dates: start: 20091026, end: 20091228
  4. ALEVE [Concomitant]
     Active Substance: NAPROXEN SODIUM
     Dosage: UNK
  5. TAMOXIFEN [Concomitant]
     Active Substance: TAMOXIFEN
     Dosage: UNK
  6. GAS-X [Concomitant]
     Active Substance: DIMETHICONE
     Dosage: UNK
  7. MIRALAX [Concomitant]
     Active Substance: POLYETHYLENE GLYCOL 3350
     Dosage: UNK
  8. TYLENOL [Concomitant]
     Active Substance: ACETAMINOPHEN
     Dosage: UNK

REACTIONS (5)
  - Alopecia [Not Recovered/Not Resolved]
  - Madarosis [Not Recovered/Not Resolved]
  - Hair disorder [Unknown]
  - Hair texture abnormal [Unknown]
  - Hair colour changes [Unknown]
